FAERS Safety Report 17375107 (Version 7)
Quarter: 2021Q2

REPORT INFORMATION
  Report Type: Spontaneous
  Country: US (occurrence: US)
  Receive Date: 20200206
  Receipt Date: 20210615
  Transmission Date: 20210716
  Serious: Yes (Hospitalization, Other)
  Sender: FDA-Public Use
  Company Number: US-HIKMA PHARMACEUTICALS USA INC.-US-H14001-20-00399

PATIENT
  Age: 70 Year
  Sex: Male

DRUGS (3)
  1. BOSENTAN. [Suspect]
     Active Substance: BOSENTAN
     Indication: PULMONARY ARTERIAL HYPERTENSION
     Route: 048
     Dates: start: 20190613
  2. BOSENTAN. [Suspect]
     Active Substance: BOSENTAN
     Dosage: UNKNOWN
     Route: 048
  3. BOSENTAN. [Suspect]
     Active Substance: BOSENTAN
     Dosage: UNKNOWN
     Route: 048

REACTIONS (3)
  - Product dose omission issue [Unknown]
  - Dementia Alzheimer^s type [Unknown]
  - Hospitalisation [Unknown]

NARRATIVE: CASE EVENT DATE: 202101
